FAERS Safety Report 23275215 (Version 1)
Quarter: 2023Q4

REPORT INFORMATION
  Report Type: Spontaneous
  Country: US (occurrence: US)
  Receive Date: 20231208
  Receipt Date: 20231208
  Transmission Date: 20240110
  Serious: Yes (Hospitalization, Other)
  Sender: FDA-Public Use
  Company Number: US-ALEMBIC PHARMACUETICALS LIMITED-2023SCAL001185

PATIENT

DRUGS (2)
  1. FLUOXETINE [Suspect]
     Active Substance: FLUOXETINE HYDROCHLORIDE
     Indication: Major depression
     Dosage: 1000 MILLIGRAM (19.5 MG/KG)
     Route: 065
  2. TRAZODONE [Concomitant]
     Active Substance: TRAZODONE HYDROCHLORIDE
     Indication: Major depression
     Dosage: UNK
     Route: 065

REACTIONS (18)
  - Toxicity to various agents [Recovered/Resolved]
  - Paraesthesia [Recovered/Resolved]
  - Akathisia [Recovered/Resolved]
  - Intentional overdose [Unknown]
  - Mydriasis [Recovered/Resolved]
  - Electrocardiogram QT prolonged [Recovered/Resolved]
  - Serotonin syndrome [Recovered/Resolved]
  - Dizziness [Recovered/Resolved]
  - Nausea [Recovered/Resolved]
  - Vomiting [Recovered/Resolved]
  - Tremor [Recovered/Resolved]
  - Tachycardia [Recovered/Resolved]
  - Blood pressure increased [Recovered/Resolved]
  - Tachypnoea [Recovered/Resolved]
  - Hyperreflexia [Recovered/Resolved]
  - Generalised tonic-clonic seizure [Recovered/Resolved]
  - Hypertonia [Recovered/Resolved]
  - Clonus [Recovered/Resolved]
